FAERS Safety Report 9278664 (Version 2)
Quarter: 2013Q2

REPORT INFORMATION
  Report Type: Spontaneous
  Country: US (occurrence: None)
  Receive Date: 20130501
  Receipt Date: 20130514
  Transmission Date: 20140414
  Serious: Yes (Other)
  Sender: FDA-Public Use
  Company Number: JPI-P-031448

PATIENT
  Age: 55 Year
  Sex: Female

DRUGS (4)
  1. XYREM [Suspect]
     Indication: NARCOLEPSY
     Dosage: (2.5 GM., 2 IN 1 D)
     Route: 048
     Dates: start: 20080923
  2. FLUTICASONE PROPIONATE SALMETEROL XINAFOATE [Concomitant]
  3. ALBUTEROL SULFATE [Concomitant]
  4. VITAMIN D [Concomitant]

REACTIONS (2)
  - Foot fracture [None]
  - Gastrooesophageal reflux disease [None]
